FAERS Safety Report 13417469 (Version 1)
Quarter: 2017Q2

REPORT INFORMATION
  Report Type: Spontaneous
  Country: US (occurrence: US)
  Receive Date: 20170407
  Receipt Date: 20170407
  Transmission Date: 20170830
  Serious: Yes (Death)
  Sender: FDA-Public Use
  Company Number: PHEH2017US010096

PATIENT
  Age: 55 Year
  Sex: Male

DRUGS (1)
  1. TYKERB [Suspect]
     Active Substance: LAPATINIB DITOSYLATE
     Indication: METASTATIC NEOPLASM
     Dosage: 6 DF, QD
     Route: 048
     Dates: start: 20160611

REACTIONS (1)
  - Death [Fatal]

NARRATIVE: CASE EVENT DATE: 20160828
